FAERS Safety Report 9342816 (Version 1)
Quarter: 2013Q2

REPORT INFORMATION
  Report Type: Spontaneous
  Country: FR (occurrence: FR)
  Receive Date: 20130611
  Receipt Date: 20130611
  Transmission Date: 20140414
  Serious: Yes (Life-Threatening, Hospitalization, Other)
  Sender: FDA-Public Use
  Company Number: FR-PFIZER INC-2013172419

PATIENT
  Age: 3 Month
  Sex: Male
  Weight: 3.44 kg

DRUGS (7)
  1. PRODILANTIN [Suspect]
     Indication: CONVULSION
     Dosage: 15 MG/KG IN 30 MINUTES
     Route: 041
     Dates: start: 20130511
  2. PRODILANTIN [Suspect]
     Dosage: 5 MG/KG IN 1 HOUR FOR AT LEAST 4 HOURS
     Route: 041
     Dates: end: 20130512
  3. GARDENAL [Concomitant]
     Indication: CONVULSION
     Dosage: 20 MG/KG, UNK
     Dates: start: 20130511, end: 20130511
  4. GARDENAL [Concomitant]
     Dosage: 10 MG/KG, UNK
     Dates: start: 20130511, end: 20130511
  5. SUFENTANIL [Concomitant]
     Indication: SEDATION
     Dosage: 0.2 ?G/KG/HOUR THEN 0.1 ?G/KG/HOUR
     Dates: start: 20130511, end: 20130511
  6. HYPNOVEL [Concomitant]
     Indication: SEDATION
     Dosage: 100 ?G/KG/HOUR
     Dates: start: 20130511, end: 20130511
  7. HYPNOVEL [Concomitant]
     Dosage: 15 GAMMA/KG/HOUR
     Dates: start: 20130512, end: 20130512

REACTIONS (9)
  - Incorrect dose administered [Recovered/Resolved]
  - Drug level increased [Recovered/Resolved]
  - Cardiac failure [Recovered/Resolved]
  - Atrioventricular block second degree [Recovered/Resolved]
  - Hyponatraemia [Recovered/Resolved]
  - Hyperkalaemia [Recovered/Resolved]
  - Convulsion [Unknown]
  - Nerve injury [Unknown]
  - Liver injury [Recovered/Resolved]
